FAERS Safety Report 6100835-3 (Version None)
Quarter: 2009Q1

REPORT INFORMATION
  Report Type: 
  Country: None (occurrence: None)
  Receive Date: 20090304
  Receipt Date: 20090302
  Transmission Date: 20090719
  Serious: Yes (Other)
  Sender: FDA-Public Use
  Company Number: US-SP-2009-00816

PATIENT
  Age: 64 Year
  Sex: Male

DRUGS (1)
  1. BCG  THERAPEUTICS [Suspect]
     Indication: BLADDER CANCER
     Route: 043

REACTIONS (5)
  - ASTHENIA [None]
  - BOVINE TUBERCULOSIS [None]
  - CHILLS [None]
  - GRANULOMA [None]
  - PYREXIA [None]
